FAERS Safety Report 23527617 (Version 1)
Quarter: 2024Q1

REPORT INFORMATION
  Report Type: Spontaneous
  Country: DK (occurrence: DK)
  Receive Date: 20240215
  Receipt Date: 20240215
  Transmission Date: 20240409
  Serious: Yes (Other)
  Sender: FDA-Public Use
  Company Number: None

PATIENT
  Age: 52 Year
  Sex: Female
  Weight: 160 kg

DRUGS (3)
  1. MYFENAX [Suspect]
     Active Substance: MYCOPHENOLATE MOFETIL
     Indication: Uveitis
     Dosage: STRENGTH: 500 MG
     Route: 048
     Dates: start: 20230207, end: 20230317
  2. ORENCIA [Concomitant]
     Active Substance: ABATACEPT
     Indication: Gouty arthritis
     Route: 065
     Dates: start: 202211
  3. HYDROCORTISONE\MICONAZOLE [Concomitant]
     Active Substance: HYDROCORTISONE\MICONAZOLE
     Indication: Product used for unknown indication
     Route: 065
     Dates: start: 20230308

REACTIONS (2)
  - Rash [Unknown]
  - Subacute cutaneous lupus erythematosus [Not Recovered/Not Resolved]

NARRATIVE: CASE EVENT DATE: 20230201
